FAERS Safety Report 7052722-4 (Version None)
Quarter: 2010Q4

REPORT INFORMATION
  Report Type: 
  Country: None (occurrence: None)
  Receive Date: 20101019
  Receipt Date: 20101015
  Transmission Date: 20110411
  Serious: Yes (Hospitalization)
  Sender: FDA-Public Use
  Company Number: DE-MERCK-1010DEU00057

PATIENT
  Age: 60 Year
  Sex: Male

DRUGS (8)
  1. PRIMAXIN [Suspect]
     Indication: PNEUMONIA
     Route: 042
     Dates: start: 20100101
  2. TACROLIMUS [Concomitant]
     Route: 065
  3. MYCOPHENOLATE MOFETIL [Concomitant]
     Route: 065
  4. CORTISONE [Concomitant]
     Route: 065
  5. ANTIVIRAL (UNSPECIFIED) [Concomitant]
     Route: 065
  6. SULFAMETHOXAZOLE AND TRIMETHOPRIM [Concomitant]
     Route: 065
  7. ANTIMICROBIAL (UNSPECIFIED) [Concomitant]
     Route: 055
  8. RANITIDINE [Concomitant]
     Route: 065

REACTIONS (2)
  - ADVERSE EVENT [None]
  - IMMUNOSUPPRESSANT DRUG LEVEL INCREASED [None]
